FAERS Safety Report 4291043-X (Version None)
Quarter: 2004Q1

REPORT INFORMATION
  Report Type: 
  Country: None (occurrence: None)
  Receive Date: 20040211
  Receipt Date: 20031030
  Transmission Date: 20041129
  Serious: No
  Sender: FDA-Public Use
  Company Number: US-GLAXOSMITHKLINE-A0432287A

PATIENT
  Sex: Female

DRUGS (2)
  1. PAXIL [Suspect]
  2. RISPERDAL [Suspect]

REACTIONS (1)
  - EPISTAXIS [None]
